FAERS Safety Report 10216981 (Version 1)
Quarter: 2014Q2

REPORT INFORMATION
  Report Type: Spontaneous
  Country: JP (occurrence: JP)
  Receive Date: 20140604
  Receipt Date: 20140604
  Transmission Date: 20141212
  Serious: Yes (Death)
  Sender: FDA-Public Use
  Company Number: JP-GLAXOSMITHKLINE-B0999782A

PATIENT
  Age: 19 Year
  Sex: Female

DRUGS (4)
  1. EPOPROSTENOL [Suspect]
     Indication: PULMONARY ARTERIAL HYPERTENSION
     Route: 065
  2. WARFARIN [Concomitant]
  3. NIFEDIPINE [Concomitant]
  4. BERAPROST [Concomitant]
     Route: 048
     Dates: start: 200201

REACTIONS (12)
  - Pancreatitis [Unknown]
  - Sialoadenitis [Unknown]
  - Dacryoadenitis acquired [Unknown]
  - Chronic sinusitis [Unknown]
  - Lacrimal gland enlargement [Unknown]
  - Parotid gland enlargement [Unknown]
  - Salivary gland enlargement [Unknown]
  - Lip swelling [Unknown]
  - Abdominal pain upper [Unknown]
  - Pancreatic enlargement [Unknown]
  - Right ventricular failure [Fatal]
  - Pulmonary hypertension [Fatal]
